FAERS Safety Report 18927388 (Version 4)
Quarter: 2021Q1

REPORT INFORMATION
  Report Type: Report from Study
  Country: ES (occurrence: ES)
  Receive Date: 20210223
  Receipt Date: 20210304
  Transmission Date: 20210420
  Serious: Yes (Disabling, Other)
  Sender: FDA-Public Use
  Company Number: ES-GLAXOSMITHKLINE-ES2021GSK048214

PATIENT
  Age: 73 Year
  Sex: Male

DRUGS (5)
  1. BELANTAMAB MAFODOTIN. [Suspect]
     Active Substance: BELANTAMAB MAFODOTIN
     Indication: PLASMA CELL MYELOMA
     Dosage: UNK UNK, CYC (CYCLE 1)
     Route: 042
     Dates: start: 20201103
  2. BELANTAMAB MAFODOTIN. [Suspect]
     Active Substance: BELANTAMAB MAFODOTIN
     Dosage: UNK UNK, CYC (CYCLE 4)
     Route: 042
     Dates: start: 20210107
  3. BELANTAMAB MAFODOTIN. [Suspect]
     Active Substance: BELANTAMAB MAFODOTIN
     Dosage: UNK UNK, CYC (CYCLE 3)
     Route: 042
     Dates: start: 20201216
  4. BELANTAMAB MAFODOTIN. [Suspect]
     Active Substance: BELANTAMAB MAFODOTIN
     Dosage: UNK UNK, CYC (CYCLE 5)
     Route: 042
     Dates: start: 20210128
  5. BELANTAMAB MAFODOTIN. [Suspect]
     Active Substance: BELANTAMAB MAFODOTIN
     Dosage: UNK UNK, CYC (CYCLE 2)
     Route: 042
     Dates: start: 20201125

REACTIONS (2)
  - Macular fibrosis [Not Recovered/Not Resolved]
  - Corneal epithelial microcysts [Recovering/Resolving]

NARRATIVE: CASE EVENT DATE: 20210125
